FAERS Safety Report 14833127 (Version 1)
Quarter: 2018Q2

REPORT INFORMATION
  Report Type: Spontaneous
  Country: US (occurrence: US)
  Receive Date: 20180414
  Receipt Date: 20180414
  Transmission Date: 20180711
  Serious: No
  Sender: FDA-Public Use
  Company Number: None

PATIENT
  Age: 40 Year
  Sex: Female
  Weight: 51.75 kg

DRUGS (2)
  1. VITAMIN C [Concomitant]
     Active Substance: ASCORBIC ACID
  2. BOTOX [Suspect]
     Active Substance: ONABOTULINUMTOXINA
     Indication: SKIN WRINKLING
     Dosage: ?          QUANTITY:6 UNITS;?
     Route: 030
     Dates: start: 20180404

REACTIONS (7)
  - Nausea [None]
  - Pruritus [None]
  - Eye pruritus [None]
  - Dizziness [None]
  - Influenza like illness [None]
  - Eye swelling [None]
  - Fatigue [None]

NARRATIVE: CASE EVENT DATE: 20180412
